FAERS Safety Report 6956408-3 (Version None)
Quarter: 2010Q3

REPORT INFORMATION
  Report Type: 
  Country: None (occurrence: None)
  Receive Date: 20100830
  Receipt Date: 20100819
  Transmission Date: 20110219
  Serious: Yes (Other)
  Sender: FDA-Public Use
  Company Number: B0662713A

PATIENT
  Sex: Male
  Weight: 62 kg

DRUGS (7)
  1. MARAVIROC [Suspect]
     Indication: HIV INFECTION
     Dosage: 300MG TWICE PER DAY
     Dates: start: 20090611
  2. DARUNAVIR ETHANOLATE [Suspect]
     Indication: HIV INFECTION
     Dosage: 800MG PER DAY
     Dates: start: 20090611
  3. RITONAVIR [Suspect]
     Indication: HIV INFECTION
     Dosage: 100MG PER DAY
     Dates: start: 20090611
  4. IBUPROFEN [Concomitant]
     Route: 048
     Dates: start: 20100705, end: 20100716
  5. PANTOPRAZOLE [Concomitant]
     Indication: PROPHYLAXIS
     Route: 048
     Dates: start: 20100705, end: 20100716
  6. BEMIPARIN [Concomitant]
     Route: 058
     Dates: start: 20100705, end: 20100716
  7. LORAZEPAM [Concomitant]
     Indication: ANXIOLYTIC THERAPY
     Route: 048
     Dates: start: 20100705, end: 20100716

REACTIONS (1)
  - BLADDER NEOPLASM [None]
